FAERS Safety Report 5707791-8 (Version None)
Quarter: 2008Q2

REPORT INFORMATION
  Report Type: 
  Country: None (occurrence: None)
  Receive Date: 20080417
  Receipt Date: 20080407
  Transmission Date: 20081010
  Serious: Yes (Other)
  Sender: FDA-Public Use
  Company Number: US-JNJFOC-20080402488

PATIENT
  Age: 43 Year
  Sex: Female
  Weight: 88.91 kg

DRUGS (1)
  1. TYLENOL [Suspect]
     Indication: SINUS DISORDER
     Dosage: 2 DOSE(S) ONCE EVERY 4 TO 6 HOURS

REACTIONS (3)
  - CONVULSION [None]
  - FALL [None]
  - INJURY [None]
